FAERS Safety Report 8367785-3 (Version None)
Quarter: 2012Q2

REPORT INFORMATION
  Report Type: 
  Country: None (occurrence: None)
  Receive Date: 20120517
  Receipt Date: 20120514
  Transmission Date: 20120825
  Serious: Yes (Other)
  Sender: FDA-Public Use
  Company Number: VE-PFIZER INC-2012111062

PATIENT
  Age: 49 Year
  Sex: Male

DRUGS (7)
  1. CARVEDILOL [Concomitant]
     Indication: HYPERTENSION
     Dosage: 25 MG, 2X/DAY
     Route: 048
  2. LIPITOR [Suspect]
     Indication: MYOCARDIAL INFARCTION
     Dosage: 80 MG, 1X/DAY
     Route: 048
     Dates: start: 20080101
  3. PLAVIX [Concomitant]
     Dosage: 75 MG, 1X/DAY
     Route: 048
  4. COZAAR [Concomitant]
     Dosage: 100 MG, 1X/DAY
     Route: 048
  5. ZANTAC [Concomitant]
     Dosage: 300 MG, 1X/DAY
     Route: 048
  6. CORAZEM [Concomitant]
     Dosage: 120 MG, 1X/DAY
     Route: 048
  7. CORASPIN [Concomitant]
     Dosage: UNK
     Route: 048

REACTIONS (1)
  - MYOCARDIAL INFARCTION [None]
